FAERS Safety Report 8933277 (Version 3)
Quarter: 2012Q4

REPORT INFORMATION
  Report Type: 
  Country: US (occurrence: US)
  Receive Date: 20121128
  Receipt Date: 20121227
  Transmission Date: 20130627
  Serious: Yes (Death, Hospitalization, Other)
  Sender: FDA-Public Use
  Company Number: US-CELGENEUS-163-21880-12113335

PATIENT
  Age: 71 Year
  Sex: Male

DRUGS (9)
  1. REVLIMID [Suspect]
     Indication: MULTIPLE MYELOMA
     Dosage: 10 Milligram
     Route: 048
     Dates: start: 20120905, end: 20121030
  2. CALCIUM [Concomitant]
     Indication: DRUG USE FOR UNKNOWN INDICATION
     Dosage: 500 Milligram
     Route: 065
  3. DEXAMETHASONE [Concomitant]
     Indication: MULTIPLE MYELOMA
     Dosage: 40 Milligram
     Route: 065
     Dates: start: 20120829, end: 20121101
  4. FISH OIL OMEGA 3 [Concomitant]
     Indication: DRUG USE FOR UNKNOWN INDICATION
     Dosage: 300 Milligram
     Route: 065
  5. ONDANSETRON HCL [Concomitant]
     Indication: DRUG USE FOR UNKNOWN INDICATION
     Dosage: 8 Milligram
     Route: 065
  6. SIMVASTATIN [Concomitant]
     Indication: HYPERLIPIDEMIA
     Dosage: 10 Milligram
     Route: 048
  7. SIMVASTATIN [Concomitant]
     Dosage: 40 Milligram
     Route: 065
  8. WARFARIN [Concomitant]
     Indication: DVT PROPHYLAXIS
     Dosage: 4 Milligram
     Route: 065
     Dates: start: 20120829, end: 20121101
  9. LISINOPRIL [Concomitant]
     Indication: PROTEINURIA
     Dosage: 5 Milligram
     Route: 065

REACTIONS (4)
  - Pneumonia [Fatal]
  - Hiccups [Unknown]
  - Sepsis [Unknown]
  - White blood cell count decreased [Unknown]
